FAERS Safety Report 6646617-5 (Version None)
Quarter: 2010Q1

REPORT INFORMATION
  Report Type: 
  Country: None (occurrence: None)
  Receive Date: 20100322
  Receipt Date: 20100322
  Transmission Date: 20100710
  Serious: Yes (Hospitalization)
  Sender: FDA-Public Use
  Company Number: None

PATIENT
  Age: 76 Year
  Sex: Male

DRUGS (1)
  1. GABAPENTIN [Suspect]
     Indication: PAIN
     Dosage: 200 MG HS PO
     Route: 048

REACTIONS (4)
  - CONFUSIONAL STATE [None]
  - DIZZINESS [None]
  - FALL [None]
  - TREMOR [None]
